FAERS Safety Report 6891445-9 (Version None)
Quarter: 2010Q3

REPORT INFORMATION
  Report Type: 
  Country: None (occurrence: None)
  Receive Date: 20100731
  Receipt Date: 20070723
  Transmission Date: 20110219
  Serious: No
  Sender: FDA-Public Use
  Company Number: US-PFIZER INC-2007034349

PATIENT
  Sex: Female
  Weight: 58.97 kg

DRUGS (4)
  1. NORVASC [Suspect]
     Indication: HYPERTENSION
     Route: 048
     Dates: start: 20070409, end: 20070422
  2. HYZAAR [Concomitant]
  3. CALCIUM [Concomitant]
  4. ACETYLSALICYLIC ACID SRT [Concomitant]

REACTIONS (9)
  - BACK PAIN [None]
  - BLOOD PRESSURE SYSTOLIC INCREASED [None]
  - BREAST PAIN [None]
  - CHEST PAIN [None]
  - DYSPNOEA [None]
  - FEELING JITTERY [None]
  - MUSCULOSKELETAL PAIN [None]
  - NASAL CONGESTION [None]
  - NERVOUSNESS [None]
